FAERS Safety Report 14150124 (Version 1)
Quarter: 2017Q4

REPORT INFORMATION
  Report Type: Spontaneous
  Country: US (occurrence: US)
  Receive Date: 20171101
  Receipt Date: 20171101
  Transmission Date: 20180321
  Serious: Yes (Other)
  Sender: FDA-Public Use
  Company Number: US-FRESENIUS KABI-FK201709239

PATIENT
  Age: 30 Year
  Sex: Male

DRUGS (8)
  1. MOXIFLOXACIN. [Concomitant]
     Active Substance: MOXIFLOXACIN
     Indication: CONJUNCTIVITIS BACTERIAL
     Route: 061
  2. FOSCARNET [Concomitant]
     Active Substance: FOSCARNET
     Indication: HERPES SIMPLEX
     Route: 050
  3. ACYCLOVIR SODIUM (MANUFACTURER UNKNOWN) [Suspect]
     Active Substance: ACYCLOVIR SODIUM
     Indication: ENDOPHTHALMITIS
     Route: 042
  4. METHYLPREDNISOLONE. [Concomitant]
     Active Substance: METHYLPREDNISOLONE
     Indication: SCLERITIS
     Route: 042
  5. AMOXICILLIN. [Concomitant]
     Active Substance: AMOXICILLIN
     Indication: CONJUNCTIVITIS BACTERIAL
     Route: 065
  6. ACYCLOVIR SODIUM (MANUFACTURER UNKNOWN) [Suspect]
     Active Substance: ACYCLOVIR SODIUM
     Indication: HERPES SIMPLEX
     Route: 042
  7. VALACYCLOVIR [Concomitant]
     Active Substance: VALACYCLOVIR HYDROCHLORIDE
     Indication: HERPES SIMPLEX
     Route: 048
  8. NORMAL SALINE [Concomitant]
     Active Substance: SODIUM CHLORIDE
     Indication: HERPES SIMPLEX
     Route: 040

REACTIONS (1)
  - Acute kidney injury [Unknown]
